FAERS Safety Report 21695636 (Version 1)
Quarter: 2022Q4

REPORT INFORMATION
  Report Type: Spontaneous
  Country: US (occurrence: None)
  Receive Date: 20221207
  Receipt Date: 20221207
  Transmission Date: 20230113
  Serious: Yes (Disabling)
  Sender: FDA-Public Use
  Company Number: None

PATIENT
  Age: 49 Year
  Sex: Female
  Weight: 54 kg

DRUGS (6)
  1. VENLAFAXINE HYDROCHLORIDE [Suspect]
     Active Substance: VENLAFAXINE HYDROCHLORIDE
     Indication: Migraine
     Dosage: OTHER QUANTITY : 90 CAPSULE(S);?FREQUENCY : EVERY 12 HOURS;?
     Route: 048
     Dates: start: 20220901, end: 20221205
  2. VENLAFAXINE HYDROCHLORIDE [Suspect]
     Active Substance: VENLAFAXINE HYDROCHLORIDE
     Indication: Vertigo
  3. SYNTHROID [Concomitant]
     Active Substance: LEVOTHYROXINE SODIUM
  4. EFFEXOR [Concomitant]
     Active Substance: VENLAFAXINE HYDROCHLORIDE
  5. MAGNESIUM [Concomitant]
     Active Substance: MAGNESIUM
  6. VITAMIN B2 [Concomitant]
     Active Substance: RIBOFLAVIN

REACTIONS (9)
  - Anxiety [None]
  - Vertigo positional [None]
  - Drug ineffective [None]
  - Loss of personal independence in daily activities [None]
  - Manufacturing issue [None]
  - Somnolence [None]
  - Yawning [None]
  - Hyperhidrosis [None]
  - Product quality issue [None]

NARRATIVE: CASE EVENT DATE: 20221201
